FAERS Safety Report 18884422 (Version 1)
Quarter: 2021Q1

REPORT INFORMATION
  Report Type: Spontaneous
  Country: US (occurrence: US)
  Receive Date: 20210209
  Receipt Date: 20210209
  Transmission Date: 20210420
  Serious: Yes (Hospitalization)
  Sender: FDA-Public Use
  Company Number: None

PATIENT
  Age: 81 Year
  Sex: Male

DRUGS (2)
  1. BD ALARISALARIS PUMP INFUSION SET BACK CHECK VALVE [Concomitant]
     Dates: start: 20210203, end: 20210203
  2. B BRAUN 0.9% SODIUM CHLORIDE INJECTION USP 1 LITER BAG [Suspect]
     Active Substance: SODIUM CHLORIDE
     Indication: PRODUCT USED FOR UNKNOWN INDICATION
     Dates: start: 20210203, end: 20210203

REACTIONS (2)
  - Product administration error [None]
  - Air embolism [None]

NARRATIVE: CASE EVENT DATE: 20210203
